FAERS Safety Report 6174741-2 (Version None)
Quarter: 2009Q2

REPORT INFORMATION
  Report Type: 
  Country: None (occurrence: None)
  Receive Date: 20090430
  Receipt Date: 20080908
  Transmission Date: 20091009
  Serious: No
  Sender: FDA-Public Use
  Company Number: US-ASTRAZENECA-2008UW18515

PATIENT
  Age: 51 Year
  Sex: Female
  Weight: 77.1 kg

DRUGS (9)
  1. NEXIUM [Suspect]
     Indication: GASTROOESOPHAGEAL REFLUX DISEASE
     Route: 048
     Dates: start: 20080905
  2. LASIX [Concomitant]
  3. POTASSIUM CHLORIDE [Concomitant]
  4. SYNTHROID [Concomitant]
  5. ESTRADIOL [Concomitant]
  6. LOPID [Concomitant]
  7. CARDURA [Concomitant]
  8. ROZEREM [Concomitant]
  9. AUGMENTIN '125' [Concomitant]

REACTIONS (7)
  - ABDOMINAL PAIN [None]
  - ASTHENIA [None]
  - DRY EYE [None]
  - DYSURIA [None]
  - NAUSEA [None]
  - OEDEMA PERIPHERAL [None]
  - PRURITUS GENERALISED [None]
